FAERS Safety Report 16468623 (Version 3)
Quarter: 2019Q3

REPORT INFORMATION
  Report Type: Spontaneous
  Country: BG (occurrence: BG)
  Receive Date: 20190624
  Receipt Date: 20190910
  Transmission Date: 20191004
  Serious: Yes (Death, Other)
  Sender: FDA-Public Use
  Company Number: BG-ROCHE-2339511

PATIENT
  Age: 77 Year
  Sex: Female

DRUGS (8)
  1. PERLINGANIT [Concomitant]
     Active Substance: NITROGLYCERIN
     Route: 065
  2. CHLOPHAZOLIN [Concomitant]
     Active Substance: CLONIDINE HYDROCHLORIDE
     Dosage: 1 AMPOULE
     Route: 065
  3. DIGOXIN. [Concomitant]
     Active Substance: DIGOXIN
     Dosage: 1/2 AMPOULE
     Route: 065
  4. FRAXIPARINE [Concomitant]
     Active Substance: NADROPARIN CALCIUM
     Route: 065
  5. SODIUM CHLORIDE 0.9% [Concomitant]
     Active Substance: SODIUM CHLORIDE
     Dosage: 500 ML X 1 BAG
     Route: 065
  6. SOMAZINA [CITICOLINE] [Concomitant]
     Dosage: 1 AMPOULE
     Route: 065
  7. VICETIN [Concomitant]
     Dosage: 1 AMPOULE
     Route: 065
  8. ACTILYSE [Suspect]
     Active Substance: ALTEPLASE
     Indication: EMBOLIC CEREBRAL INFARCTION
     Dosage: 8.1 + 72.9 MG
     Route: 065

REACTIONS (7)
  - Cardiopulmonary failure [Fatal]
  - Renal impairment [Unknown]
  - Cerebral disorder [Unknown]
  - Pyrexia [Unknown]
  - Brain oedema [Unknown]
  - Coma [Fatal]
  - Electrolyte imbalance [Unknown]
